FAERS Safety Report 8384520-3 (Version None)
Quarter: 2012Q2

REPORT INFORMATION
  Report Type: 
  Country: None (occurrence: None)
  Receive Date: 20120524
  Receipt Date: 20120515
  Transmission Date: 20120825
  Serious: No
  Sender: FDA-Public Use
  Company Number: US-ASTRAZENECA-2012SE26024

PATIENT
  Age: 51 Year
  Sex: Female

DRUGS (3)
  1. NEXIUM [Suspect]
     Route: 048
  2. PRILOSEC [Suspect]
     Route: 048
  3. PRILOSEC OTC [Suspect]
     Indication: HIATUS HERNIA
     Route: 048

REACTIONS (5)
  - DYSPEPSIA [None]
  - PAIN [None]
  - ULCER [None]
  - HIATUS HERNIA [None]
  - DRUG INEFFECTIVE [None]
